FAERS Safety Report 8155471-4 (Version None)
Quarter: 2012Q1

REPORT INFORMATION
  Report Type: 
  Country: None (occurrence: None)
  Receive Date: 20120222
  Receipt Date: 20120213
  Transmission Date: 20120608
  Serious: Yes (Hospitalization, Other)
  Sender: FDA-Public Use
  Company Number: IL-ELI_LILLY_AND_COMPANY-IL201202004642

PATIENT
  Sex: Female

DRUGS (4)
  1. TRITACE COMP [Concomitant]
     Indication: HYPERTENSION
  2. FORTEO [Suspect]
     Indication: OSTEOPOROSIS
     Dosage: 20 UG, QD
     Route: 058
     Dates: start: 20100428, end: 20111205
  3. RAMIPRIL [Concomitant]
     Indication: HYPERTENSION
  4. CARTIA                             /00002701/ [Concomitant]

REACTIONS (2)
  - MYOCARDIAL INFARCTION [None]
  - CARDIAC DISORDER [None]
